FAERS Safety Report 16234559 (Version 1)
Quarter: 2019Q2

REPORT INFORMATION
  Report Type: Report from Study
  Country: US (occurrence: US)
  Receive Date: 20190424
  Receipt Date: 20190424
  Transmission Date: 20190711
  Serious: Yes (Other)
  Sender: FDA-Public Use
  Company Number: US-APOPHARMA-2019AP012534

PATIENT
  Sex: Male
  Weight: 51 kg

DRUGS (1)
  1. FERRIPROX [Suspect]
     Active Substance: DEFERIPRONE
     Indication: THALASSAEMIA
     Dosage: 20 MG/KG, TID
     Route: 048
     Dates: start: 20120523

REACTIONS (2)
  - Atrial fibrillation [Recovered/Resolved]
  - Sinusitis [Recovered/Resolved]
